FAERS Safety Report 5721676-2 (Version None)
Quarter: 2008Q2

REPORT INFORMATION
  Report Type: 
  Country: None (occurrence: None)
  Receive Date: 20080429
  Receipt Date: 20080418
  Transmission Date: 20081010
  Serious: Yes (Hospitalization)
  Sender: FDA-Public Use
  Company Number: AU-ROCHE-412025

PATIENT
  Sex: Male
  Weight: 79 kg

DRUGS (2)
  1. PEGASYS [Suspect]
     Route: 058
     Dates: start: 20050404
  2. RIBAVIRIN [Suspect]
     Route: 048
     Dates: start: 20050404

REACTIONS (1)
  - EPIDIDYMAL CYST [None]
